FAERS Safety Report 23585695 (Version 1)
Quarter: 2024Q1

REPORT INFORMATION
  Report Type: Spontaneous
  Country: US (occurrence: None)
  Receive Date: 20240229
  Receipt Date: 20240229
  Transmission Date: 20240410
  Serious: Yes (Hospitalization)
  Sender: FDA-Public Use
  Company Number: None

PATIENT
  Sex: Female

DRUGS (2)
  1. MYCOPHENOLATE MOFETIL [Suspect]
     Active Substance: MYCOPHENOLATE MOFETIL
     Indication: Heart transplant
     Dosage: 500MG TWICE A DAY BY MOUTH
     Route: 048
     Dates: start: 202312
  2. TACROLIMUS(ASCEND) [Concomitant]

REACTIONS (3)
  - Gastroenteritis viral [None]
  - Nausea [None]
  - Vomiting [None]
